FAERS Safety Report 13232172 (Version 2)
Quarter: 2018Q1

REPORT INFORMATION
  Report Type: Spontaneous
  Country: US (occurrence: US)
  Receive Date: 20170214
  Receipt Date: 20180207
  Transmission Date: 20180508
  Serious: No
  Sender: FDA-Public Use
  Company Number: US-BAYER-2017-028482

PATIENT
  Sex: Male

DRUGS (1)
  1. KOGENATE FS [Suspect]
     Active Substance: ANTIHEMOPHILIC FACTOR, HUMAN RECOMBINANT
     Dosage: 1495 U TID 2093 U FOR MINOR BLEEDING 2990 U FOR EMERGENCY BLEEDING
     Route: 042
     Dates: start: 20141217

REACTIONS (1)
  - Epistaxis [None]
